FAERS Safety Report 23407554 (Version 2)
Quarter: 2024Q1

REPORT INFORMATION
  Report Type: Spontaneous
  Country: US (occurrence: US)
  Receive Date: 20240117
  Receipt Date: 20240122
  Transmission Date: 20240410
  Serious: No
  Sender: FDA-Public Use
  Company Number: US-OPELLA-2024OHG001292

PATIENT

DRUGS (1)
  1. MENTHOL [Suspect]
     Active Substance: MENTHOL

REACTIONS (2)
  - Drug ineffective [Unknown]
  - No adverse event [Unknown]
